FAERS Safety Report 6643945-4 (Version None)
Quarter: 2010Q1

REPORT INFORMATION
  Report Type: 
  Country: None (occurrence: None)
  Receive Date: 20100322
  Receipt Date: 20100312
  Transmission Date: 20100710
  Serious: Yes (Hospitalization)
  Sender: FDA-Public Use
  Company Number: SE-BRISTOL-MYERS SQUIBB COMPANY-15015472

PATIENT
  Age: 65 Year
  Sex: Female

DRUGS (8)
  1. ABILIFY [Suspect]
     Indication: DEPRESSION
     Dates: start: 20100105, end: 20100209
  2. NEXIUM [Concomitant]
  3. TRILAFON [Concomitant]
     Dosage: TRILAFON (PERPHENAZINE) 8 MG FILM-COATED TABLETS
  4. MALLOROL [Concomitant]
     Dosage: MALLOROL (THIORIAZINE HYDROCHLORIDE) 100 MG FILM-COATED TABLETS,
  5. HALDOL [Concomitant]
     Dosage: HALDOL  1 MG TABLET
  6. MYCOSTATIN [Concomitant]
  7. FURIX [Concomitant]
     Dosage: FURIX (FUROSEMIDE) 20 MG TABLETS
  8. TROMBYL [Concomitant]
     Dosage: TROMBYL  75 MG TABLETS.

REACTIONS (6)
  - DIZZINESS [None]
  - FALL [None]
  - HEAD INJURY [None]
  - NAUSEA [None]
  - SYNCOPE [None]
  - VOMITING [None]
